FAERS Safety Report 18700355 (Version 1)
Quarter: 2021Q1

REPORT INFORMATION
  Report Type: Spontaneous
  Country: NL (occurrence: NL)
  Receive Date: 20210105
  Receipt Date: 20210105
  Transmission Date: 20210419
  Serious: Yes (Other)
  Sender: FDA-Public Use
  Company Number: NL-LEO PHARMA-333964

PATIENT
  Sex: Male
  Weight: 87 kg

DRUGS (2)
  1. PROTOPIC [Suspect]
     Active Substance: TACROLIMUS
     Indication: SEBORRHOEIC DERMATITIS
     Dates: start: 2019, end: 20200901
  2. CICLOPIROX/ LOPROX HYDROFIELE [Concomitant]
     Indication: PRODUCT USED FOR UNKNOWN INDICATION
     Dosage: 10MG/G

REACTIONS (2)
  - Basal cell carcinoma [Recovered/Resolved]
  - Product use in unapproved indication [Unknown]
